FAERS Safety Report 11087107 (Version 2)
Quarter: 2015Q2

REPORT INFORMATION
  Report Type: Spontaneous
  Country: JP (occurrence: JP)
  Receive Date: 20150504
  Receipt Date: 20150528
  Transmission Date: 20150821
  Serious: Yes (Death)
  Sender: FDA-Public Use
  Company Number: JP-MALLINCKRODT-T201502297

PATIENT
  Age: 66 Year
  Sex: Male
  Weight: 55 kg

DRUGS (15)
  1. MAGMITT [Concomitant]
     Active Substance: MAGNESIUM OXIDE
     Dosage: 990MG
     Route: 048
     Dates: end: 20150414
  2. WARFARIN K [Concomitant]
     Active Substance: WARFARIN POTASSIUM
     Dosage: 1.5MG
     Route: 048
     Dates: end: 20150408
  3. SERENASE [Concomitant]
     Active Substance: HALOPERIDOL
     Dosage: 5MG
     Route: 051
     Dates: start: 20150414, end: 20150415
  4. ADONA [Concomitant]
     Active Substance: CARBAZOCHROME SODIUM SULFONATE
     Dosage: 90 MG
     Route: 048
     Dates: start: 20150411, end: 20150414
  5. LANSOPRAZOLE. [Concomitant]
     Active Substance: LANSOPRAZOLE
     Dosage: 14MG
     Route: 048
     Dates: end: 20150414
  6. MIYA-BM [Concomitant]
     Active Substance: CLOSTRIDIUM BUTYRICUM SPORES STRAIN M-55
     Dosage: 1 DF
     Route: 048
     Dates: end: 20150414
  7. SERENASE [Concomitant]
     Active Substance: HALOPERIDOL
     Dosage: 5MG
     Route: 058
     Dates: start: 20150414, end: 20150415
  8. TRANSAMIN [Concomitant]
     Active Substance: TRANEXAMIC ACID
     Dosage: 750 MG
     Route: 048
     Dates: start: 20150411, end: 20150414
  9. METHADONE [Suspect]
     Active Substance: METHADONE HYDROCHLORIDE
     Indication: CANCER PAIN
     Dosage: 5MG, (15MG DAILY DOSE)
     Route: 048
     Dates: start: 20150408, end: 20150413
  10. BETANAMIN [Concomitant]
     Dosage: 10MG
     Route: 048
     Dates: end: 20150414
  11. OXINORM [Concomitant]
     Active Substance: OXYCODONE HYDROCHLORIDE
     Dosage: 5 - 10MG, P.R.N.
     Route: 048
     Dates: start: 20140407
  12. RINDERON V [Concomitant]
     Active Substance: BETAMETHASONE VALERATE
     Dosage: 4MG
     Route: 058
     Dates: start: 20150409, end: 20150414
  13. NOVAMIN [Concomitant]
     Active Substance: PROCHLORPERAZINE MALEATE
     Dosage: 5MG
     Route: 030
     Dates: start: 20150413, end: 20150413
  14. CAMOSTAT [Concomitant]
     Active Substance: CAMOSTAT
     Dosage: 300MG
     Route: 048
     Dates: end: 20150414
  15. LOXOPROFEN SODIUM [Concomitant]
     Active Substance: LOXOPROFEN SODIUM
     Dosage: 180MG
     Route: 048
     Dates: start: 20150410, end: 20150414

REACTIONS (2)
  - Rectosigmoid cancer [Fatal]
  - Insomnia [Not Recovered/Not Resolved]

NARRATIVE: CASE EVENT DATE: 20150408
